FAERS Safety Report 17661384 (Version 2)
Quarter: 2020Q2

REPORT INFORMATION
  Report Type: Report from Study
  Country: GB (occurrence: GB)
  Receive Date: 20200413
  Receipt Date: 20200415
  Transmission Date: 20200713
  Serious: Yes (Hospitalization, Other)
  Sender: FDA-Public Use
  Company Number: GB-GLAXOSMITHKLINE-GB2020EME062695

PATIENT
  Sex: Female

DRUGS (1)
  1. MEPOLIZUMAB [Suspect]
     Active Substance: MEPOLIZUMAB
     Indication: ASTHMA
     Dosage: 100 MG, Z (EVERY 4 WEEKS)

REACTIONS (7)
  - Headache [Unknown]
  - Lower respiratory tract infection [Unknown]
  - Procedural complication [Unknown]
  - Influenza [Unknown]
  - Dyspnoea [Unknown]
  - Back pain [Unknown]
  - Somnolence [Unknown]
